FAERS Safety Report 5382130-3 (Version None)
Quarter: 2007Q3

REPORT INFORMATION
  Report Type: 
  Country: None (occurrence: None)
  Receive Date: 20070705
  Receipt Date: 20070620
  Transmission Date: 20080115
  Serious: Yes (Other)
  Sender: FDA-Public Use
  Company Number: 2007001150

PATIENT
  Age: 85 Year
  Sex: Male

DRUGS (1)
  1. TARCEVA [Suspect]
     Indication: NON-SMALL CELL LUNG CANCER
     Dosage: 150 MG (QD), ORAL
     Route: 048
     Dates: start: 20070313

REACTIONS (4)
  - HYPOKALAEMIA [None]
  - MUCOSAL INFLAMMATION [None]
  - MUSCLE SPASMS [None]
  - RASH [None]
